FAERS Safety Report 4475268-6 (Version None)
Quarter: 2004Q4

REPORT INFORMATION
  Report Type: 
  Country: None (occurrence: None)
  Receive Date: 20041012
  Receipt Date: 20040929
  Transmission Date: 20050328
  Serious: Yes (Other)
  Sender: FDA-Public Use
  Company Number: 2004235918US

PATIENT
  Sex: Female

DRUGS (3)
  1. PROVERA [Suspect]
     Indication: HORMONE REPLACEMENT THERAPY
     Dates: start: 19950101, end: 19980101
  2. PREMPRO [Suspect]
     Dates: start: 19950101, end: 19980101
  3. PREMARIN [Suspect]
     Dates: start: 19950101, end: 19980101

REACTIONS (1)
  - BREAST CANCER FEMALE [None]
